FAERS Safety Report 5978647-0 (Version None)
Quarter: 2008Q4

REPORT INFORMATION
  Report Type: 
  Country: None (occurrence: None)
  Receive Date: 20081204
  Receipt Date: 20081128
  Transmission Date: 20090506
  Serious: Yes (Other)
  Sender: FDA-Public Use
  Company Number: GR-ABBOTT-08P-066-0489387-00

PATIENT
  Age: 45 Year
  Sex: Female

DRUGS (1)
  1. DARONDA [Suspect]
     Indication: BREAST CANCER
     Route: 050
     Dates: start: 20081117

REACTIONS (2)
  - FLUSHING [None]
  - HYPERTENSION [None]
